APPROVED DRUG PRODUCT: CLINDAGEL
Active Ingredient: CLINDAMYCIN PHOSPHATE
Strength: EQ 1% BASE
Dosage Form/Route: GEL;TOPICAL
Application: N050782 | Product #001 | TE Code: AB2
Applicant: BAUSCH HEALTH US LLC
Approved: Nov 27, 2000 | RLD: Yes | RS: Yes | Type: RX